FAERS Safety Report 5257154-7 (Version None)
Quarter: 2007Q1

REPORT INFORMATION
  Report Type: 
  Country: None (occurrence: None)
  Receive Date: 20070302
  Receipt Date: 20070221
  Transmission Date: 20070707
  Serious: Yes (Other)
  Sender: FDA-Public Use
  Company Number: GXBR2006US02151

PATIENT
  Age: 81 Year
  Sex: Male
  Weight: 108.8 kg

DRUGS (10)
  1. AMIODARONE HCL [Suspect]
     Indication: VENTRICULAR ARRHYTHMIA
     Dosage: 200 MG, QD, ORAL
     Route: 048
     Dates: end: 20061208
  2. NORVASC [Concomitant]
  3. ENALAPRIL MALEATE [Concomitant]
  4. COREG [Concomitant]
  5. LIPITOR /NET/ (ATORVASTATIN CALCIUM) [Concomitant]
  6. FUROSEMIDE [Concomitant]
  7. KLOR-CON [Concomitant]
  8. PROSCAR [Concomitant]
  9. FOLIC ACID [Concomitant]
  10. ASPIRIN [Concomitant]

REACTIONS (8)
  - ABDOMINAL DISCOMFORT [None]
  - DIAPHRAGMATIC PARALYSIS [None]
  - DRUG INEFFECTIVE [None]
  - FALL [None]
  - FOOT FRACTURE [None]
  - HEART RATE DECREASED [None]
  - SLEEP APNOEA SYNDROME [None]
  - VENTRICULAR EXTRASYSTOLES [None]
